FAERS Safety Report 8935343 (Version 1)
Quarter: 2012Q4

REPORT INFORMATION
  Report Type: Spontaneous
  Country: US (occurrence: None)
  Receive Date: 20121127
  Receipt Date: 20121127
  Transmission Date: 20130627
  Serious: No
  Sender: FDA-Public Use
  Company Number: None

PATIENT
  Sex: Male
  Weight: 83.01 kg

DRUGS (1)
  1. AMPHETAMINE DEXTROAMPHETAMINE, 20 MG EXTENDED RELEASE [Suspect]
     Indication: ADHD
     Route: 048
     Dates: start: 201212

REACTIONS (3)
  - Irritability [None]
  - Heart rate increased [None]
  - Product substitution issue [None]
